FAERS Safety Report 4901558-6 (Version None)
Quarter: 2006Q1

REPORT INFORMATION
  Report Type: 
  Country: None (occurrence: None)
  Receive Date: 20060206
  Receipt Date: 20050217
  Transmission Date: 20060701
  Serious: No
  Sender: FDA-Public Use
  Company Number: US-BRISTOL-MYERS SQUIBB COMPANY-12869137

PATIENT
  Sex: Female

DRUGS (4)
  1. TAXOL [Suspect]
     Indication: BREAST CANCER METASTATIC
     Route: 042
     Dates: start: 20040101
  2. PARAPLATIN [Suspect]
  3. AMOXICILLIN [Concomitant]
  4. DEXAMETHASONE TAB [Concomitant]
     Indication: PREMEDICATION
     Route: 042

REACTIONS (1)
  - RASH [None]
